FAERS Safety Report 21529210 (Version 4)
Quarter: 2023Q2

REPORT INFORMATION
  Report Type: Report from Study
  Country: CO (occurrence: CO)
  Receive Date: 20221031
  Receipt Date: 20230623
  Transmission Date: 20230722
  Serious: Yes (Hospitalization, Other)
  Sender: FDA-Public Use
  Company Number: CO-NOVARTISPH-NVSC2022CO244147

PATIENT
  Sex: Female

DRUGS (1)
  1. BROLUCIZUMAB [Suspect]
     Active Substance: BROLUCIZUMAB
     Indication: Chorioretinitis
     Dosage: (SOLUTION) (IN THE EYE), QMO
     Route: 047

REACTIONS (5)
  - Inflammation [Unknown]
  - Erythema [Recovered/Resolved]
  - Macular oedema [Unknown]
  - Vitreous floaters [Unknown]
  - Off label use [Unknown]
